FAERS Safety Report 13986547 (Version 1)
Quarter: 2017Q3

REPORT INFORMATION
  Report Type: Report from Study
  Country: NL (occurrence: NL)
  Receive Date: 20170919
  Receipt Date: 20170919
  Transmission Date: 20171128
  Serious: Yes (Hospitalization)
  Sender: FDA-Public Use
  Company Number: NL-SYNTHON BIOPHARMACEUTICALS BV-17NL000134

PATIENT
  Age: 72 Year
  Sex: Female
  Weight: 62 kg

DRUGS (1)
  1. SYD985 [Suspect]
     Active Substance: TRASTUZUMAB DUOCARMAZINE
     Indication: NEOPLASM
     Dosage: 1.2 MG/KG, Q3W
     Route: 042
     Dates: start: 20170504, end: 20170817

REACTIONS (1)
  - Pain in extremity [Not Recovered/Not Resolved]

NARRATIVE: CASE EVENT DATE: 20170905
